FAERS Safety Report 8024513-9 (Version None)
Quarter: 2012Q1

REPORT INFORMATION
  Report Type: 
  Country: None (occurrence: None)
  Receive Date: 20120103
  Receipt Date: 20111216
  Transmission Date: 20120608
  Serious: Yes (Hospitalization)
  Sender: FDA-Public Use
  Company Number: 056-50794-11122241

PATIENT
  Age: 79 Year
  Sex: Male
  Weight: 90 kg

DRUGS (13)
  1. ACTRAPID (INSULIN BOVINE) (UNKNOWN) [Concomitant]
  2. CREON (PANCREATIN) (UNKNOWN) [Concomitant]
  3. AMLOR (AMLODIPINE BESILATE) (UNKNOWN) [Concomitant]
  4. FORADIL [Concomitant]
  5. VIDAZA [Suspect]
     Indication: MYELODYSPLASTIC SYNDROME
     Dosage: 150 MG, IV, 100 MG, IV
     Route: 042
     Dates: start: 20111212
  6. VIDAZA [Suspect]
     Indication: MYELODYSPLASTIC SYNDROME
     Dosage: 150 MG, IV, 100 MG, IV
     Route: 042
     Dates: start: 20111114, end: 20111122
  7. IDARUBICIN HCL [Suspect]
     Indication: MYELODYSPLASTIC SYNDROME
     Dosage: 20 MG, IV
     Route: 042
     Dates: start: 20111114, end: 20111212
  8. DOLIPRANE (PARACETAMOL) (UNKNOWN) [Concomitant]
  9. PLAVIX [Concomitant]
  10. ACUITEL (QUINAPRIL) (UNKNOWN) [Concomitant]
  11. NEURONTIN [Concomitant]
  12. LASILIX (FUROSEMIDE) (UNKNOWN) [Concomitant]
  13. CYMBALTA [Concomitant]

REACTIONS (23)
  - PNEUMONIA [None]
  - SEPSIS [None]
  - LUNG DISORDER [None]
  - RENAL FAILURE [None]
  - ANAEMIA [None]
  - DEHYDRATION [None]
  - DRUG TOLERANCE DECREASED [None]
  - PERICARDIAL EFFUSION [None]
  - CONDITION AGGRAVATED [None]
  - THROMBOCYTOPENIA [None]
  - MYOCARDIAL INFARCTION [None]
  - HYPOREFLEXIA [None]
  - LEFT VENTRICULAR FAILURE [None]
  - ATRIAL FIBRILLATION [None]
  - VOMITING [None]
  - OESOPHAGITIS [None]
  - STAPHYLOCOCCUS TEST POSITIVE [None]
  - HAEMATOMA [None]
  - BLOOD POTASSIUM DECREASED [None]
  - GASTROINTESTINAL FUNGAL INFECTION [None]
  - NAUSEA [None]
  - HYPOPHAGIA [None]
  - WEIGHT DECREASED [None]
